FAERS Safety Report 17813614 (Version 1)
Quarter: 2020Q2

REPORT INFORMATION
  Report Type: Spontaneous
  Country: US (occurrence: US)
  Receive Date: 20200521
  Receipt Date: 20200521
  Transmission Date: 20200714
  Serious: Yes (Disabling, Other)
  Sender: FDA-Public Use
  Company Number: US-PURDUE-USA-2020-0153156

PATIENT

DRUGS (2)
  1. HYDROCODONE BITARTRATE (SIMILAR TO NDA 206627) [Suspect]
     Active Substance: HYDROCODONE BITARTRATE
     Indication: FIBROMYALGIA
     Dosage: UNK
     Route: 048
  2. HYDROCODONE BITARTRATE (SIMILAR TO NDA 206627) [Suspect]
     Active Substance: HYDROCODONE BITARTRATE
     Indication: BACK PAIN

REACTIONS (7)
  - Incoherent [Unknown]
  - Loss of consciousness [Unknown]
  - Impaired work ability [Unknown]
  - Disability [Unknown]
  - Tinnitus [Unknown]
  - Near death experience [Unknown]
  - Amnesia [Unknown]

NARRATIVE: CASE EVENT DATE: 200501
